FAERS Safety Report 24307399 (Version 1)
Quarter: 2024Q3

REPORT INFORMATION
  Report Type: Spontaneous
  Country: CN (occurrence: CN)
  Receive Date: 20240911
  Receipt Date: 20240911
  Transmission Date: 20241016
  Serious: Yes (Hospitalization, Other)
  Sender: MERCK KGAA
  Company Number: CN-Merck Healthcare KGaA-2024047344

PATIENT
  Sex: Female

DRUGS (2)
  1. EUTHYROX [Suspect]
     Active Substance: LEVOTHYROXINE SODIUM
     Indication: Autoimmune thyroiditis
     Route: 048
  2. COVID-19 VACCINE [Concomitant]
     Indication: COVID-19 immunisation

REACTIONS (8)
  - Thyroid mass [Unknown]
  - Cardiac discomfort [Unknown]
  - Diplopia [Unknown]
  - Osteoporosis [Unknown]
  - Hypothyroidism [Unknown]
  - Palpitations [Unknown]
  - Insomnia [Unknown]
  - Suspected counterfeit product [Unknown]
